FAERS Safety Report 6843777-8 (Version None)
Quarter: 2010Q3

REPORT INFORMATION
  Report Type: 
  Country: None (occurrence: None)
  Receive Date: 20100714
  Receipt Date: 20100714
  Transmission Date: 20110219
  Serious: Yes (Hospitalization)
  Sender: FDA-Public Use
  Company Number: None

PATIENT
  Age: 75 Year
  Sex: Female

DRUGS (2)
  1. MORPHINE [Suspect]
     Indication: PAIN
     Dosage: 15 MG BID PO
     Route: 048
     Dates: start: 20050817, end: 20100523
  2. OXYCODONE AND ACETAMINOPHEN [Suspect]
     Indication: PAIN
     Dosage: 5 MG OTHER PO
     Route: 048
     Dates: start: 20100421, end: 20100523

REACTIONS (4)
  - MENTAL STATUS CHANGES [None]
  - RENAL FAILURE ACUTE [None]
  - RHABDOMYOLYSIS [None]
  - SEDATION [None]
